FAERS Safety Report 20279752 (Version 2)
Quarter: 2022Q1

REPORT INFORMATION
  Report Type: Report from Study
  Country: US (occurrence: None)
  Receive Date: 20220103
  Receipt Date: 20220110
  Transmission Date: 20220424
  Serious: Yes (Hospitalization)
  Sender: FDA-Public Use
  Company Number: US-ROCHE-2988365

PATIENT
  Age: 68 Year
  Sex: Male
  Weight: 95.2 kg

DRUGS (9)
  1. ATEZOLIZUMAB [Suspect]
     Active Substance: ATEZOLIZUMAB
     Indication: Metastatic malignant melanoma
     Route: 041
     Dates: start: 20211018
  2. BEVACIZUMAB [Suspect]
     Active Substance: BEVACIZUMAB
     Indication: Metastatic malignant melanoma
     Route: 042
     Dates: start: 20211018
  3. TRANDATE [Concomitant]
     Active Substance: LABETALOL HYDROCHLORIDE
     Route: 048
  4. DIPROLENE AF [Concomitant]
     Active Substance: BETAMETHASONE DIPROPIONATE
     Route: 061
  5. VITAMIN D3 [Concomitant]
     Active Substance: CHOLECALCIFEROL
     Route: 048
  6. FLORINEF ACETATE [Concomitant]
     Active Substance: FLUDROCORTISONE ACETATE
     Route: 048
  7. HYDROCORTISONE [Concomitant]
     Active Substance: HYDROCORTISONE
     Route: 048
  8. NIZORAL [Concomitant]
     Active Substance: KETOCONAZOLE
     Route: 061
  9. TRIAMCINOLONE ACETONIDE [Concomitant]
     Active Substance: TRIAMCINOLONE ACETONIDE
     Route: 061

REACTIONS (5)
  - Headache [Unknown]
  - Cardiac failure [Recovered/Resolved]
  - Cardiomyopathy [Unknown]
  - Hypertension [Recovered/Resolved]
  - Pleural effusion [Not Recovered/Not Resolved]

NARRATIVE: CASE EVENT DATE: 20211110
